FAERS Safety Report 7409863-9 (Version None)
Quarter: 2011Q2

REPORT INFORMATION
  Report Type: 
  Country: None (occurrence: None)
  Receive Date: 20110412
  Receipt Date: 20110321
  Transmission Date: 20111010
  Serious: Yes (Hospitalization, Other)
  Sender: FDA-Public Use
  Company Number: US-BAYER-201024992NA

PATIENT
  Age: 34 Year
  Sex: Female
  Weight: 63.492 kg

DRUGS (7)
  1. YASMIN [Suspect]
     Indication: CONTRACEPTION
     Dosage: UNK
     Dates: start: 20031003, end: 20031124
  2. AMITRIPTYLINE HCL [Concomitant]
  3. YASMIN [Suspect]
     Indication: PREMENSTRUAL SYNDROME
     Dosage: UNK
     Route: 048
     Dates: start: 20031001, end: 20031201
  4. YASMIN [Suspect]
     Indication: ACNE
  5. CHERATUSSIN AC [Concomitant]
  6. YASMIN [Suspect]
  7. AMOXICILLIN [Concomitant]
     Dosage: 875 MG, UNK

REACTIONS (1)
  - PULMONARY EMBOLISM [None]
